FAERS Safety Report 8203694-8 (Version None)
Quarter: 2012Q1

REPORT INFORMATION
  Report Type: 
  Country: None (occurrence: None)
  Receive Date: 20120313
  Receipt Date: 20120305
  Transmission Date: 20120608
  Serious: Yes (Death, Other)
  Sender: FDA-Public Use
  Company Number: US-PAR PHARMACEUTICAL, INC-2012SCPR004260

PATIENT

DRUGS (3)
  1. MEGESTROL ACETATE [Suspect]
     Indication: ENDOMETRIAL SARCOMA
     Dosage: 120 MG, DAILY
     Route: 065
  2. DOCETAXEL [Concomitant]
     Indication: PRODUCT USED FOR UNKNOWN INDICATION
     Dosage: UNK, UNKNOWN
     Route: 065
  3. GEMCITABINE [Concomitant]
     Indication: PRODUCT USED FOR UNKNOWN INDICATION
     Dosage: UNK, UNKNOWN
     Route: 065

REACTIONS (4)
  - SARCOMA UTERUS [None]
  - DISEASE COMPLICATION [None]
  - DEATH [None]
  - MENINGIOMA [None]
